FAERS Safety Report 24250721 (Version 1)
Quarter: 2024Q3

REPORT INFORMATION
  Report Type: Spontaneous
  Country: US (occurrence: US)
  Receive Date: 20240826
  Receipt Date: 20240826
  Transmission Date: 20241017
  Serious: No
  Sender: MEDEXUS PHARMA
  Company Number: US-MEDEXUS PHARMA, INC.-2024MED00306

PATIENT

DRUGS (2)
  1. RASUVO [Suspect]
     Active Substance: METHOTREXATE SODIUM
     Indication: Arthritis
     Dosage: 20 MG, 1X/WEEK
  2. COSENTYX [Suspect]
     Active Substance: SECUKINUMAB
     Dosage: UNK

REACTIONS (2)
  - Arthritis [Not Recovered/Not Resolved]
  - Off label use [Not Recovered/Not Resolved]
